FAERS Safety Report 15052905 (Version 1)
Quarter: 2018Q2

REPORT INFORMATION
  Report Type: Report from Study
  Country: None (occurrence: US)
  Receive Date: 20180622
  Receipt Date: 20180622
  Transmission Date: 20180711
  Serious: Yes (Hospitalization)
  Sender: FDA-Public Use
  Company Number: US-ABBVIE-18P-163-2391300-00

PATIENT
  Sex: Male

DRUGS (1)
  1. CREON [Suspect]
     Active Substance: PANCRELIPASE AMYLASE\PANCRELIPASE LIPASE\PANCRELIPASE PROTEASE
     Indication: PRODUCT USED FOR UNKNOWN INDICATION
     Route: 048

REACTIONS (8)
  - Small intestinal obstruction [Unknown]
  - Constipation [Unknown]
  - Tibia fracture [Recovered/Resolved]
  - Cellulitis [Unknown]
  - Hypertension [Unknown]
  - Fibula fracture [Recovered/Resolved]
  - Wound infection staphylococcal [Unknown]
  - Coronary artery disease [Unknown]
